FAERS Safety Report 6334327-3 (Version None)
Quarter: 2009Q3

REPORT INFORMATION
  Report Type: 
  Country: None (occurrence: None)
  Receive Date: 20090829
  Receipt Date: 20090807
  Transmission Date: 20100115
  Serious: No
  Sender: FDA-Public Use
  Company Number: US-ABBOTT-09P-163-0590104-00

PATIENT
  Sex: Female
  Weight: 61.29 kg

DRUGS (5)
  1. SIMCOR [Suspect]
     Indication: BLOOD CHOLESTEROL INCREASED
     Dosage: 500/20 MILLIGRAMS
     Route: 048
     Dates: start: 20090724
  2. ESTRACE [Concomitant]
     Indication: HORMONE REPLACEMENT THERAPY
     Route: 048
  3. SYNTHROID [Concomitant]
     Indication: THYROIDECTOMY
     Route: 048
  4. ASPIRIN [Concomitant]
     Indication: FLUSHING
     Route: 048
  5. ASPIRIN [Concomitant]
     Indication: PROPHYLAXIS

REACTIONS (1)
  - UNEVALUABLE EVENT [None]
